FAERS Safety Report 18557695 (Version 4)
Quarter: 2021Q1

REPORT INFORMATION
  Report Type: Report from Study
  Country: IE (occurrence: IE)
  Receive Date: 20201130
  Receipt Date: 20210217
  Transmission Date: 20210419
  Serious: Yes (Death, Hospitalization)
  Sender: FDA-Public Use
  Company Number: IE-JNJFOC-20201146002

PATIENT
  Age: 82 Year
  Sex: Male

DRUGS (20)
  1. CALCICHEW [Concomitant]
     Active Substance: CALCIUM CARBONATE
     Dosage: 1 N/A
     Route: 050
  2. OMEPRAZOLE. [Concomitant]
     Active Substance: OMEPRAZOLE
     Route: 050
  3. NOVOMIX [Concomitant]
     Active Substance: INSULIN ASPART
     Dosage: 25 UNITS
     Route: 050
  4. ELIQUIS [Concomitant]
     Active Substance: APIXABAN
     Route: 050
  5. GALFER [Concomitant]
     Active Substance: IRON
     Route: 050
  6. ATORVASTATIN [Concomitant]
     Active Substance: ATORVASTATIN
     Route: 050
  7. BICALUTAMIDE. [Concomitant]
     Active Substance: BICALUTAMIDE
     Route: 050
  8. SPIRIVA [Concomitant]
     Active Substance: TIOTROPIUM BROMIDE MONOHYDRATE
     Dosage: 1 N/A
     Route: 050
  9. TOVIAZ [Concomitant]
     Active Substance: FESOTERODINE FUMARATE
     Route: 050
  10. NOVOMIX [Concomitant]
     Active Substance: INSULIN ASPART
     Dosage: NOVOMIX30 TEA TIME, 18 UNITS
     Route: 050
  11. ZYTIGA [Suspect]
     Active Substance: ABIRATERONE ACETATE
     Indication: PROSTATE CANCER METASTATIC
     Route: 048
     Dates: start: 20201110
  12. METFORMIN [Concomitant]
     Active Substance: METFORMIN HYDROCHLORIDE
     Route: 050
  13. PERINDOPRIL [Concomitant]
     Active Substance: PERINDOPRIL
     Route: 050
  14. DELTACORTRIL [Concomitant]
     Active Substance: PREDNISOLONE
     Route: 050
  15. LUPRON DEPOT [Concomitant]
     Active Substance: LEUPROLIDE ACETATE
     Dosage: 1 N/A
     Route: 050
  16. COMBODART [Concomitant]
     Active Substance: DUTASTERIDE\TAMSULOSIN
     Route: 050
  17. SERETIDE [Concomitant]
     Active Substance: FLUTICASONE PROPIONATE\SALMETEROL XINAFOATE
     Dosage: 1 N/A
     Route: 050
  18. BISOPROLOL [Concomitant]
     Active Substance: BISOPROLOL
     Route: 050
  19. FOLIC ACID. [Concomitant]
     Active Substance: FOLIC ACID
     Route: 050
  20. LERCANIDIPINE [Concomitant]
     Active Substance: LERCANIDIPINE
     Route: 050

REACTIONS (3)
  - Death [Fatal]
  - Device occlusion [Recovered/Resolved]
  - Kidney infection [Not Recovered/Not Resolved]

NARRATIVE: CASE EVENT DATE: 20201119
